FAERS Safety Report 20769467 (Version 4)
Quarter: 2022Q2

REPORT INFORMATION
  Report Type: Report from Study
  Country: RU (occurrence: None)
  Receive Date: 20220429
  Receipt Date: 20220526
  Transmission Date: 20220721
  Serious: Yes (Hospitalization)
  Sender: FDA-Public Use
  Company Number: RU-Eisai Medical Research-EC-2022-113840

PATIENT
  Age: 51 Year
  Sex: Male
  Weight: 69 kg

DRUGS (6)
  1. LENVATINIB [Suspect]
     Active Substance: LENVATINIB
     Indication: Non-small cell lung cancer metastatic
     Route: 048
     Dates: start: 20220114, end: 20220417
  2. PEMBROLIZUMAB [Suspect]
     Active Substance: PEMBROLIZUMAB
     Indication: Non-small cell lung cancer metastatic
     Route: 041
     Dates: start: 20220114, end: 20220310
  3. PEMBROLIZUMAB [Suspect]
     Active Substance: PEMBROLIZUMAB
     Route: 041
     Dates: start: 20220331, end: 20220331
  4. KETOROLAC TROMETHAMINE [Concomitant]
     Active Substance: KETOROLAC TROMETHAMINE
     Dates: start: 202011
  5. OMEPRAZOLE [Concomitant]
     Active Substance: OMEPRAZOLE
     Dates: start: 202011
  6. APIXABAN [Concomitant]
     Active Substance: APIXABAN
     Dates: start: 20220203

REACTIONS (1)
  - Small intestinal perforation [Recovered/Resolved]

NARRATIVE: CASE EVENT DATE: 20220417
